FAERS Safety Report 14256167 (Version 3)
Quarter: 2018Q3

REPORT INFORMATION
  Report Type: Report from Study
  Country: AR (occurrence: AR)
  Receive Date: 20171206
  Receipt Date: 20180814
  Transmission Date: 20181010
  Serious: No
  Sender: FDA-Public Use
  Company Number: PHHY2017AR171057

PATIENT
  Age: 57 Year
  Sex: Female

DRUGS (4)
  1. LEVOTHYROXINE. [Concomitant]
     Active Substance: LEVOTHYROXINE
     Indication: PRODUCT USED FOR UNKNOWN INDICATION
     Route: 065
  2. COSENTYX [Suspect]
     Active Substance: SECUKINUMAB
     Indication: PSORIATIC ARTHROPATHY
     Dosage: 300 MG, QMO
     Route: 065
     Dates: start: 20170912
  3. COSENTYX [Suspect]
     Active Substance: SECUKINUMAB
     Indication: PSORIASIS
     Dosage: 300 MG, QMO
     Route: 065
     Dates: start: 20171205, end: 201802
  4. OMEPRAZOLE. [Concomitant]
     Active Substance: OMEPRAZOLE
     Indication: GASTRITIS
     Route: 065

REACTIONS (20)
  - Blood pressure decreased [Recovered/Resolved]
  - Inappropriate schedule of drug administration [Unknown]
  - Oedema peripheral [Not Recovered/Not Resolved]
  - Osteoarthritis [Unknown]
  - Foot deformity [Unknown]
  - Renal disorder [Unknown]
  - Diarrhoea [Unknown]
  - Articular disc disorder [Unknown]
  - Arthralgia [Unknown]
  - Hypotension [Recovering/Resolving]
  - Drug hypersensitivity [Recovered/Resolved]
  - Productive cough [Unknown]
  - Urinary tract infection [Unknown]
  - Drug ineffective [Unknown]
  - Syncope [Recovered/Resolved]
  - Lip swelling [Recovered/Resolved]
  - Arthropathy [Not Recovered/Not Resolved]
  - Lip swelling [Unknown]
  - Psoriatic arthropathy [Unknown]
  - Oedema [Unknown]

NARRATIVE: CASE EVENT DATE: 20171107
